FAERS Safety Report 5821870-6 (Version None)
Quarter: 2008Q3

REPORT INFORMATION
  Report Type: 
  Country: None (occurrence: None)
  Receive Date: 20080724
  Receipt Date: 20080714
  Transmission Date: 20090109
  Serious: Yes (Life-Threatening, Hospitalization)
  Sender: FDA-Public Use
  Company Number: RO-ROCHE-575853

PATIENT
  Sex: Male

DRUGS (2)
  1. PEG-INTERFERON A-2A (RO 25-8310) [Suspect]
     Route: 058
     Dates: start: 20080310, end: 20080704
  2. COPEGUS [Concomitant]
     Route: 048
     Dates: start: 20080310, end: 20080704

REACTIONS (3)
  - ASCITES [None]
  - DEPRESSION [None]
  - SUICIDAL IDEATION [None]
